FAERS Safety Report 7204606-6 (Version None)
Quarter: 2010Q4

REPORT INFORMATION
  Report Type: 
  Country: None (occurrence: None)
  Receive Date: 20101230
  Receipt Date: 20101220
  Transmission Date: 20110411
  Serious: Yes (Hospitalization, Disabling, Other)
  Sender: FDA-Public Use
  Company Number: US-MERCK-1012USA01252

PATIENT
  Age: 74 Year
  Sex: Female

DRUGS (12)
  1. FOSAMAX [Suspect]
     Indication: OSTEOPOROSIS
     Route: 048
     Dates: start: 19970101, end: 20100801
  2. CARDURA [Concomitant]
     Route: 065
  3. ASPIRIN [Concomitant]
     Route: 065
  4. ATENOLOL [Concomitant]
     Route: 065
  5. PRILOSEC [Concomitant]
     Route: 065
  6. ELAVIL [Concomitant]
     Route: 048
  7. MAXZIDE [Concomitant]
     Route: 065
  8. BESPAR [Concomitant]
     Route: 065
  9. VITAMIN D (UNSPECIFIED) [Concomitant]
     Route: 065
  10. VITAMIN E [Concomitant]
     Route: 065
  11. OMEGA-3 MARINE TRIGLYCERIDES [Concomitant]
     Route: 065
  12. CALCIUM (UNSPECIFIED) [Concomitant]
     Route: 065

REACTIONS (2)
  - ARTHROPATHY [None]
  - FEMUR FRACTURE [None]
